FAERS Safety Report 21972784 (Version 2)
Quarter: 2023Q1

REPORT INFORMATION
  Report Type: Spontaneous
  Country: CO (occurrence: CO)
  Receive Date: 20230209
  Receipt Date: 20230301
  Transmission Date: 20230418
  Serious: No
  Sender: FDA-Public Use
  Company Number: CO-PFIZER INC-PV202300018800

PATIENT
  Age: 10 Year
  Sex: Female

DRUGS (1)
  1. GENOTROPIN [Suspect]
     Active Substance: SOMATROPIN
     Dosage: 0.6 MG
     Route: 058
     Dates: start: 202106

REACTIONS (5)
  - Device use issue [Unknown]
  - Device mechanical issue [Unknown]
  - Poor quality device used [Unknown]
  - Device occlusion [Unknown]
  - Incorrect dose administered by device [Unknown]
